FAERS Safety Report 8261811-8 (Version None)
Quarter: 2012Q2

REPORT INFORMATION
  Report Type: 
  Country: None (occurrence: None)
  Receive Date: 20120405
  Receipt Date: 20120326
  Transmission Date: 20120825
  Serious: Yes (Other)
  Sender: FDA-Public Use
  Company Number: BE-BRISTOL-MYERS SQUIBB COMPANY-16420002

PATIENT
  Age: 56 Year
  Sex: Male

DRUGS (4)
  1. ASPIRIN [Concomitant]
  2. RAMIPRIL [Concomitant]
  3. ONGLYZA [Suspect]
     Dosage: 1FD: 1TAB
     Dates: start: 20120211
  4. GLUCOPHAGE [Concomitant]

REACTIONS (1)
  - ANGIOEDEMA [None]
